FAERS Safety Report 16714402 (Version 1)
Quarter: 2019Q3

REPORT INFORMATION
  Report Type: Spontaneous
  Country: GB (occurrence: GB)
  Receive Date: 20190819
  Receipt Date: 20190819
  Transmission Date: 20191004
  Serious: Yes (Hospitalization)
  Sender: FDA-Public Use
  Company Number: GB-BIOGEN-2019BI00774795

PATIENT
  Sex: Female

DRUGS (1)
  1. TECFIDERA [Suspect]
     Active Substance: DIMETHYL FUMARATE
     Indication: MULTIPLE SCLEROSIS
     Dosage: MAINTENANCE DOSE
     Route: 048
     Dates: start: 20190617

REACTIONS (10)
  - Fatigue [Unknown]
  - Pain [Unknown]
  - Abdominal pain [Unknown]
  - Feeling of body temperature change [Unknown]
  - Body temperature increased [Unknown]
  - Abdominal pain upper [Unknown]
  - Vomiting [Unknown]
  - Heart rate increased [Unknown]
  - Diarrhoea [Unknown]
  - Muscle spasms [Unknown]
